FAERS Safety Report 6278713-9 (Version None)
Quarter: 2009Q3

REPORT INFORMATION
  Report Type: 
  Country: None (occurrence: None)
  Receive Date: 20090721
  Receipt Date: 20090709
  Transmission Date: 20100115
  Serious: Yes (Death, Hospitalization)
  Sender: FDA-Public Use
  Company Number: AE-2009-110

PATIENT
  Age: 61 Year
  Sex: Female

DRUGS (4)
  1. METFORMIN [Suspect]
     Dosage: 850MG, TID,ORAL
     Route: 048
  2. GLICLAZIDE [Suspect]
     Dosage: 900MG,DAILY,ORAL
     Route: 048
  3. FUROSEMIDE [Concomitant]
  4. QUINAPRIL [Concomitant]

REACTIONS (5)
  - DEHYDRATION [None]
  - HYPOGLYCAEMIA [None]
  - LACTIC ACIDOSIS [None]
  - RENAL FAILURE ACUTE [None]
  - SHOCK [None]
